FAERS Safety Report 7541341-9 (Version None)
Quarter: 2011Q2

REPORT INFORMATION
  Report Type: 
  Country: None (occurrence: None)
  Receive Date: 20110612
  Receipt Date: 20110603
  Transmission Date: 20111010
  Serious: Yes (Death, Life-Threatening)
  Sender: FDA-Public Use
  Company Number: JP-CELGENEUS-087-50794-11041475

PATIENT
  Sex: Female

DRUGS (10)
  1. FRANDOL [Concomitant]
     Dosage: 1 DOSAGE FORMS
     Route: 065
     Dates: start: 20110311, end: 20110330
  2. EXJADE [Concomitant]
     Route: 065
  3. LYRICA [Concomitant]
     Dosage: 75 MILLIGRAM
     Route: 048
     Dates: start: 20110329, end: 20110330
  4. LASIX [Concomitant]
     Dosage: 1 DOSAGE FORMS
     Route: 048
     Dates: start: 20110311, end: 20110330
  5. CANDESARTAN CILEXETIL [Concomitant]
     Dosage: 1 DOSAGE FORMS
     Route: 048
     Dates: start: 20110311, end: 20110330
  6. SULFAMETHOXAZOLE [Concomitant]
     Dosage: 1 DF/DAY
     Route: 048
     Dates: start: 20110326, end: 20110330
  7. SIGMART [Concomitant]
     Dosage: 15 MILLIGRAM
     Route: 048
     Dates: start: 20110311, end: 20110330
  8. VIDAZA [Suspect]
     Dosage: 90 MILLIGRAM
     Route: 058
     Dates: start: 20110323, end: 20110329
  9. NORVASC [Concomitant]
     Dosage: 2.5 MILLIGRAM
     Route: 048
     Dates: start: 20110311, end: 20110330
  10. DIFLUCAN [Concomitant]
     Dosage: 100 MILLIGRAM
     Route: 065
     Dates: start: 20110326, end: 20110330

REACTIONS (2)
  - PNEUMONIA [None]
  - HEPATITIS ACUTE [None]
